FAERS Safety Report 22627857 (Version 1)
Quarter: 2023Q2

REPORT INFORMATION
  Report Type: Spontaneous
  Country: US (occurrence: US)
  Receive Date: 20230622
  Receipt Date: 20230622
  Transmission Date: 20230722
  Serious: No
  Sender: FDA-Public Use
  Company Number: US-TOLMAR, INC.-23US041328

PATIENT
  Age: 62 Year
  Sex: Male

DRUGS (1)
  1. KETOCONAZOLE [Suspect]
     Active Substance: KETOCONAZOLE
     Indication: Alopecia
     Dosage: UNK, QD
     Route: 003

REACTIONS (2)
  - Application site erosion [Recovered/Resolved]
  - Off label use [Unknown]
